FAERS Safety Report 21904585 (Version 1)
Quarter: 2023Q1

REPORT INFORMATION
  Report Type: Spontaneous
  Country: US (occurrence: US)
  Receive Date: 20230124
  Receipt Date: 20230124
  Transmission Date: 20230418
  Serious: No
  Sender: FDA-Public Use
  Company Number: US-BIOVITRUM-2023US01124

PATIENT
  Sex: Male
  Weight: 4 kg

DRUGS (5)
  1. SYNAGIS [Suspect]
     Active Substance: PALIVIZUMAB
     Indication: Ventricular septal defect
     Dates: start: 20230119
  2. ENALAPRIL MALEATE [Concomitant]
     Active Substance: ENALAPRIL MALEATE
     Dosage: 1 MG/ML SOLUTION
  3. VITAMIN D3 [Concomitant]
     Active Substance: CHOLECALCIFEROL
     Dosage: 10(400)/ML DROPS
  4. LASIX [Concomitant]
     Active Substance: FUROSEMIDE
     Dosage: 20 MG TABLET
  5. SYNAGIS [Suspect]
     Active Substance: PALIVIZUMAB
     Indication: Premature baby

REACTIONS (1)
  - Somnolence [Unknown]
